FAERS Safety Report 20062673 (Version 1)
Quarter: 2021Q4

REPORT INFORMATION
  Report Type: Spontaneous
  Country: US (occurrence: None)
  Receive Date: 20211111
  Receipt Date: 20211111
  Transmission Date: 20220303
  Serious: Yes (Disabling)
  Sender: FDA-Public Use
  Company Number: None

PATIENT
  Age: 9 Year

DRUGS (1)
  1. MONTELUKAST SODIUM [Suspect]
     Active Substance: MONTELUKAST SODIUM
     Indication: Asthma
     Dosage: FREQUENCY : DAILY;?
     Route: 048

REACTIONS (8)
  - Hallucination, visual [None]
  - Fear [None]
  - Anxiety [None]
  - Depression [None]
  - Dissociation [None]
  - Self esteem decreased [None]
  - Suicidal ideation [None]
  - Emotional distress [None]

NARRATIVE: CASE EVENT DATE: 20081008
